FAERS Safety Report 4359024-5 (Version None)
Quarter: 2004Q2

REPORT INFORMATION
  Report Type: 
  Country: None (occurrence: None)
  Receive Date: 20040517
  Receipt Date: 20040510
  Transmission Date: 20050107
  Serious: Yes (Other)
  Sender: FDA-Public Use
  Company Number: US-GLAXOSMITHKLINE-A0510330A

PATIENT
  Age: 14 Year
  Sex: Female

DRUGS (1)
  1. PAXIL [Suspect]
     Indication: DRUG USE FOR UNKNOWN INDICATION
     Route: 048

REACTIONS (17)
  - ABASIA [None]
  - ATAXIA [None]
  - BLOOD CHOLESTEROL INCREASED [None]
  - BLOOD TRIGLYCERIDES INCREASED [None]
  - DEHYDRATION [None]
  - DIZZINESS [None]
  - DYSSTASIA [None]
  - EPISTAXIS [None]
  - HYPERHIDROSIS [None]
  - HYPOTRICHOSIS [None]
  - INFLUENZA LIKE ILLNESS [None]
  - MENORRHAGIA [None]
  - MENSTRUATION IRREGULAR [None]
  - MOBILITY DECREASED [None]
  - MUSCLE ATROPHY [None]
  - ORTHOSTATIC HYPOTENSION [None]
  - RED BLOOD CELL SEDIMENTATION RATE INCREASED [None]
